FAERS Safety Report 7961947-2 (Version None)
Quarter: 2011Q4

REPORT INFORMATION
  Report Type: 
  Country: None (occurrence: None)
  Receive Date: 20111207
  Receipt Date: 20111122
  Transmission Date: 20120403
  Serious: Yes (Hospitalization, Other)
  Sender: FDA-Public Use
  Company Number: CL-ROCHE-1015918

PATIENT
  Sex: Male
  Weight: 69 kg

DRUGS (2)
  1. XELODA [Suspect]
     Indication: COLON CANCER
     Dosage: 2000 MG IN MORNING AND AT NIGHT
     Route: 048
     Dates: start: 20111021, end: 20111122
  2. ANTINEOPLASTIC AGENT NOS [Suspect]
     Indication: COLON CANCER
     Route: 042
     Dates: start: 20111021, end: 20111122

REACTIONS (5)
  - HYPOTENSION [None]
  - DECREASED APPETITE [None]
  - SYNCOPE [None]
  - DEHYDRATION [None]
  - LOSS OF CONSCIOUSNESS [None]
